FAERS Safety Report 14272803 (Version 1)
Quarter: 2017Q4

REPORT INFORMATION
  Report Type: Spontaneous
  Country: US (occurrence: US)
  Receive Date: 20171212
  Receipt Date: 20171212
  Transmission Date: 20180321
  Serious: Yes (Other)
  Sender: FDA-Public Use
  Company Number: US-REGENERON PHARMACEUTICALS, INC.-2017-28422

PATIENT

DRUGS (2)
  1. ARCALYST [Suspect]
     Active Substance: RILONACEPT
     Indication: FAMILIAL COLD AUTOINFLAMMATORY SYNDROME
     Dosage: 220 MG, WEEKLY
     Route: 058
     Dates: start: 200504
  2. ARCALYST [Suspect]
     Active Substance: RILONACEPT
     Dosage: 220 MG, LAST PRIOR TO EVENT
     Route: 058
     Dates: start: 20171122, end: 20171122

REACTIONS (4)
  - Prescription drug used without a prescription [Recovered/Resolved]
  - Dementia [Unknown]
  - Ill-defined disorder [Unknown]
  - Drug dose omission [Recovered/Resolved]

NARRATIVE: CASE EVENT DATE: 2016
